FAERS Safety Report 18057563 (Version 2)
Quarter: 2020Q3

REPORT INFORMATION
  Report Type: Report from Study
  Country: US (occurrence: US)
  Receive Date: 20200723
  Receipt Date: 20200819
  Transmission Date: 20201103
  Serious: Yes (Hospitalization)
  Sender: FDA-Public Use
  Company Number: US-EMD SERONO-9175817

PATIENT
  Sex: Female

DRUGS (1)
  1. REBIF [Suspect]
     Active Substance: INTERFERON BETA-1A
     Indication: MULTIPLE SCLEROSIS
     Dosage: PREVIOUSLY USED REBIJECT II/MANUAL
     Route: 058
     Dates: start: 20181026

REACTIONS (2)
  - Memory impairment [Unknown]
  - Musculoskeletal disorder [Unknown]
